FAERS Safety Report 17886497 (Version 2)
Quarter: 2020Q4

REPORT INFORMATION
  Report Type: Spontaneous
  Country: US (occurrence: US)
  Receive Date: 20200611
  Receipt Date: 20201012
  Transmission Date: 20210113
  Serious: Yes (Other)
  Sender: FDA-Public Use
  Company Number: US-ABBVIE-20K-163-3438212-00

PATIENT
  Sex: Female

DRUGS (1)
  1. HUMIRA [Suspect]
     Active Substance: ADALIMUMAB
     Indication: RHEUMATOID ARTHRITIS
     Route: 058

REACTIONS (10)
  - Gait disturbance [Unknown]
  - Upper limb fracture [Unknown]
  - COVID-19 [Unknown]
  - Head injury [Unknown]
  - Facial bones fracture [Unknown]
  - Carpal tunnel syndrome [Unknown]
  - Nerve injury [Unknown]
  - Fall [Unknown]
  - Road traffic accident [Unknown]
  - Ligament rupture [Unknown]

NARRATIVE: CASE EVENT DATE: 2020
